FAERS Safety Report 25596540 (Version 2)
Quarter: 2025Q3

REPORT INFORMATION
  Report Type: Spontaneous
  Country: BR (occurrence: BR)
  Receive Date: 20250723
  Receipt Date: 20250728
  Transmission Date: 20251020
  Serious: No
  Sender: CHATTEM
  Company Number: BR-OPELLA-2025OHG022452

PATIENT
  Sex: Male

DRUGS (1)
  1. ALLEGRA [Suspect]
     Active Substance: FEXOFENADINE HYDROCHLORIDE
     Indication: Product used for unknown indication
     Route: 065

REACTIONS (2)
  - Balance disorder [Unknown]
  - Dizziness [Unknown]
